FAERS Safety Report 7701270-4 (Version None)
Quarter: 2011Q3

REPORT INFORMATION
  Report Type: 
  Country: None (occurrence: None)
  Receive Date: 20110822
  Receipt Date: 20110819
  Transmission Date: 20111222
  Serious: Yes (Other)
  Sender: FDA-Public Use
  Company Number: FR-GLAXOSMITHKLINE-B0740909A

PATIENT
  Age: 63 Year
  Sex: Female

DRUGS (6)
  1. AZILECT [Suspect]
     Dosage: 1MG PER DAY
     Route: 048
     Dates: start: 20110208
  2. DOMPERIDONE [Concomitant]
     Route: 065
  3. ATORVASTATIN CALCIUM [Concomitant]
     Route: 065
  4. MODOPAR [Suspect]
     Indication: PARKINSON'S DISEASE
     Dosage: 125MG UNKNOWN
     Route: 048
     Dates: start: 20100923
  5. STALEVO 100 [Suspect]
     Indication: PARKINSON'S DISEASE
     Dosage: 1UNIT SIX TIMES PER DAY
     Route: 048
     Dates: end: 20100923
  6. REQUIP [Suspect]
     Indication: PARKINSON'S DISEASE
     Dosage: 20MG PER DAY
     Route: 048

REACTIONS (2)
  - MALIGNANT MELANOMA [None]
  - METASTASES TO SKIN [None]
